FAERS Safety Report 20948788 (Version 2)
Quarter: 2022Q2

REPORT INFORMATION
  Report Type: Spontaneous
  Country: US (occurrence: US)
  Receive Date: 20220612
  Receipt Date: 20220621
  Transmission Date: 20220721
  Serious: No
  Sender: FDA-Public Use
  Company Number: US-LUPIN PHARMACEUTICALS INC.-2022-08277

PATIENT
  Sex: Male

DRUGS (1)
  1. ALBUTEROL SULFATE [Suspect]
     Active Substance: ALBUTEROL SULFATE
     Indication: Cough
     Dosage: UNK, PRN, INHALE 2 PUFFS ORALLY INTO LUNGS USING SPACER EVERY 4 HOURS

REACTIONS (2)
  - Therapeutic product ineffective [Unknown]
  - Device malfunction [Unknown]
